FAERS Safety Report 16458902 (Version 1)
Quarter: 2019Q2

REPORT INFORMATION
  Report Type: Spontaneous
  Country: US (occurrence: US)
  Receive Date: 20190620
  Receipt Date: 20190620
  Transmission Date: 20190711
  Serious: No
  Sender: FDA-Public Use
  Company Number: US-THERAPEUTICSMD-2019TMD00978

PATIENT
  Age: 57 Year
  Sex: Female
  Weight: 77.1 kg

DRUGS (3)
  1. IMVEXXY [Suspect]
     Active Substance: ESTRADIOL
     Indication: VULVOVAGINAL DRYNESS
     Dosage: 10 ?G IN THE MORNING; REMAINED UPRIGHT AND ACTIVE
     Route: 067
     Dates: start: 20190415, end: 20190422
  2. LEVOTHYROXINE. [Concomitant]
     Active Substance: LEVOTHYROXINE
     Dosage: UNK, 1X/DAY
  3. LIPITOR [Concomitant]
     Active Substance: ATORVASTATIN CALCIUM
     Dosage: UNK UNK, 1X/DAY
     Dates: start: 2019

REACTIONS (4)
  - Dermatitis contact [Recovering/Resolving]
  - Off label use [Recovered/Resolved]
  - Rash pruritic [Recovering/Resolving]
  - Rash macular [Recovering/Resolving]

NARRATIVE: CASE EVENT DATE: 20190415
